FAERS Safety Report 9467367 (Version 1)
Quarter: 2013Q3

REPORT INFORMATION
  Report Type: Spontaneous
  Country: CA (occurrence: CA)
  Receive Date: 20130821
  Receipt Date: 20130821
  Transmission Date: 20140515
  Serious: Yes (Death)
  Sender: FDA-Public Use
  Company Number: CA-CELGENEUS-028-21880-13082085

PATIENT
  Age: 65 Year
  Sex: Male

DRUGS (4)
  1. REVLIMID [Suspect]
     Indication: PLASMA CELL MYELOMA
     Route: 048
     Dates: start: 20100830
  2. REVLIMID [Suspect]
     Route: 048
     Dates: start: 20110609
  3. REVLIMID [Suspect]
     Route: 048
     Dates: start: 20120917
  4. REVLIMID [Suspect]
     Route: 048
     Dates: start: 20130103

REACTIONS (1)
  - Plasma cell myeloma [Fatal]
